FAERS Safety Report 4975654-1 (Version None)
Quarter: 2006Q2

REPORT INFORMATION
  Report Type: 
  Country: None (occurrence: None)
  Receive Date: 20060407
  Receipt Date: 20060329
  Transmission Date: 20061013
  Serious: Yes (Death, Other)
  Sender: FDA-Public Use
  Company Number: 200611651BWH

PATIENT
  Age: 45 Year
  Sex: Male

DRUGS (1)
  1. NEXAVAR [Suspect]
     Indication: MALIGNANT MELANOMA
     Dosage: 200 MG, BID, ORAL
     Route: 048
     Dates: start: 20060123, end: 20060316

REACTIONS (4)
  - HEPATOCELLULAR DAMAGE [None]
  - MALIGNANT MELANOMA [None]
  - MALIGNANT NEOPLASM PROGRESSION [None]
  - METASTASES TO LIVER [None]
